FAERS Safety Report 8387618-9 (Version None)
Quarter: 2012Q2

REPORT INFORMATION
  Report Type: 
  Country: None (occurrence: None)
  Receive Date: 20120525
  Receipt Date: 20120522
  Transmission Date: 20120825
  Serious: Yes (Life-Threatening)
  Sender: FDA-Public Use
  Company Number: DK-PFIZER INC-2011082778

PATIENT
  Age: 41 Year
  Sex: Female
  Weight: 58 kg

DRUGS (4)
  1. LYRICA [Suspect]
     Indication: PAIN
     Dosage: 75 MG DAILY
     Route: 048
     Dates: start: 20110328
  2. LYRICA [Suspect]
     Indication: DEPRESSION
  3. FLUANXOL [Concomitant]
     Indication: MENTAL DISORDER
     Dosage: UNK
     Dates: start: 20110202, end: 20110404
  4. LYRICA [Suspect]
     Indication: POST-TRAUMATIC STRESS DISORDER
     Dosage: 75 MG + 150MG DAILY
     Route: 048
     Dates: end: 20110402

REACTIONS (9)
  - PYREXIA [None]
  - ECZEMA INFECTED [None]
  - HEADACHE [None]
  - RASH MACULAR [None]
  - PRURITUS [None]
  - MUSCULAR WEAKNESS [None]
  - PIGMENTATION DISORDER [None]
  - STEVENS-JOHNSON SYNDROME [None]
  - RASH [None]
